FAERS Safety Report 9696930 (Version 2)
Quarter: 2013Q4

REPORT INFORMATION
  Report Type: Spontaneous
  Country: US (occurrence: US)
  Receive Date: 20131119
  Receipt Date: 20131119
  Transmission Date: 20140711
  Serious: No
  Sender: FDA-Public Use
  Company Number: US-GILEAD-2007-0013509

PATIENT
  Age: 48 Year
  Sex: Female
  Weight: 68.04 kg

DRUGS (12)
  1. LETAIRIS [Suspect]
     Indication: PULMONARY ARTERIAL HYPERTENSION
     Route: 048
     Dates: start: 20070802
  2. FLOLAN [Concomitant]
     Indication: PULMONARY ARTERIAL HYPERTENSION
     Route: 042
     Dates: start: 20031020
  3. DIGOXIN [Concomitant]
     Route: 048
     Dates: start: 20070826
  4. CRESTOR [Concomitant]
     Indication: BLOOD CHOLESTEROL
     Route: 048
     Dates: start: 20070206
  5. DILTIAZEM [Concomitant]
     Route: 048
     Dates: start: 20050314
  6. WARFARIN [Concomitant]
     Route: 048
     Dates: start: 20050314
  7. FUROSEMIDE [Concomitant]
     Route: 048
     Dates: start: 20041118
  8. ALPRAZOLAM [Concomitant]
     Route: 048
     Dates: start: 20041118
  9. MAGNESIUM AND CALCIUM [Concomitant]
     Route: 048
     Dates: start: 20041118
  10. SPIRONOLACTONE [Concomitant]
     Route: 048
     Dates: start: 20040429
  11. PRILOSEC [Concomitant]
     Route: 048
     Dates: start: 20040421
  12. OXYGEN [Concomitant]
     Route: 055
     Dates: start: 20031024

REACTIONS (3)
  - Fatigue [Recovered/Resolved]
  - Dyspnoea [Recovered/Resolved]
  - Palpitations [Recovered/Resolved]
